FAERS Safety Report 4528607-1 (Version None)
Quarter: 2004Q4

REPORT INFORMATION
  Report Type: 
  Country: None (occurrence: None)
  Receive Date: 20041216
  Receipt Date: 20040930
  Transmission Date: 20050328
  Serious: Yes (Other)
  Sender: FDA-Public Use
  Company Number: PHEH2004US10539

PATIENT
  Age: 69 Year
  Sex: Female

DRUGS (3)
  1. CEFTIN [Suspect]
     Indication: OSTEONECROSIS
     Dosage: 500 MG, BID
     Route: 048
     Dates: start: 20040601, end: 20040801
  2. ROCEPHIN [Suspect]
     Indication: OSTEONECROSIS
     Dosage: 1 G, QD
     Route: 048
  3. ZOMETA [Suspect]
     Indication: RENAL CELL CARCINOMA STAGE UNSPECIFIED

REACTIONS (9)
  - BONE DEBRIDEMENT [None]
  - ESCHERICHIA INFECTION [None]
  - FISTULA [None]
  - FISTULA REPAIR [None]
  - OSTEOMYELITIS [None]
  - OSTEONECROSIS [None]
  - SEQUESTRECTOMY [None]
  - TOOTH EXTRACTION [None]
  - WOUND SECRETION [None]
